FAERS Safety Report 6758748-X (Version None)
Quarter: 2010Q2

REPORT INFORMATION
  Report Type: 
  Country: None (occurrence: None)
  Receive Date: 20100602
  Receipt Date: 20100519
  Transmission Date: 20101027
  Serious: Yes (Hospitalization, Other)
  Sender: FDA-Public Use
  Company Number: 2010SP026429

PATIENT
  Age: 52 Year
  Sex: Female

DRUGS (7)
  1. REBETOL [Suspect]
     Indication: HEPATITIS C
     Dosage: 600 MG;QD;PO;PO
     Route: 048
     Dates: start: 20100427, end: 20100507
  2. INTRON A [Suspect]
     Indication: DRUG USE FOR UNKNOWN INDICATION
     Dosage: IM
     Route: 030
  3. INTERFERON [Suspect]
     Indication: HEPATITIS C
     Dosage: 3 MIU;BID;IV
     Route: 042
     Dates: start: 20100427, end: 20100507
  4. LIVALO (CON.) [Concomitant]
  5. LOXONIN (CON.) [Concomitant]
  6. MUCOSTA (CON.) [Concomitant]
  7. MYSLEE (CON.) [Concomitant]

REACTIONS (6)
  - COUGH [None]
  - DECREASED APPETITE [None]
  - INTERSTITIAL LUNG DISEASE [None]
  - PALPITATIONS [None]
  - PANCYTOPENIA [None]
  - PYREXIA [None]
